FAERS Safety Report 14038539 (Version 1)
Quarter: 2017Q4

REPORT INFORMATION
  Report Type: Spontaneous
  Country: FI (occurrence: FI)
  Receive Date: 20171004
  Receipt Date: 20171004
  Transmission Date: 20180321
  Serious: Yes (Hospitalization)
  Sender: FDA-Public Use
  Company Number: FI-JNJFOC-20170925827

PATIENT
  Age: 81 Year
  Sex: Female

DRUGS (9)
  1. LIPCUT [Concomitant]
     Active Substance: SIMVASTATIN
     Route: 065
  2. RISPERDAL [Suspect]
     Active Substance: RISPERIDONE
     Indication: CIRCADIAN RHYTHM SLEEP DISORDER
     Dosage: OCCASIONALLY IN USE
     Route: 048
     Dates: end: 20170710
  3. MICARDIS [Concomitant]
     Active Substance: TELMISARTAN
     Route: 065
  4. FURESIS [Concomitant]
     Active Substance: FUROSEMIDE
     Route: 065
  5. NITROSID [Concomitant]
     Route: 065
  6. COHEMIN [Concomitant]
     Route: 065
  7. BISOPROLOL [Concomitant]
     Active Substance: BISOPROLOL
     Route: 065
  8. IMOVANE [Concomitant]
     Active Substance: ZOPICLONE
     Route: 065
  9. EMGESAN [Concomitant]
     Route: 065

REACTIONS (17)
  - Cardiac failure [Unknown]
  - Pyrexia [Not Recovered/Not Resolved]
  - Sinus tachycardia [Unknown]
  - Depressed level of consciousness [Not Recovered/Not Resolved]
  - Sepsis [Not Recovered/Not Resolved]
  - Muscle rigidity [Recovered/Resolved]
  - Inappropriate schedule of drug administration [Unknown]
  - Off label use [Unknown]
  - Product use in unapproved indication [Unknown]
  - General physical health deterioration [Unknown]
  - Neuroleptic malignant syndrome [Recovered/Resolved]
  - Fall [Unknown]
  - Myocardial infarction [Unknown]
  - Dyspnoea [Not Recovered/Not Resolved]
  - Atrial fibrillation [Unknown]
  - Bradycardia [Unknown]
  - Dystonia [Recovered/Resolved]

NARRATIVE: CASE EVENT DATE: 2017
